FAERS Safety Report 9554961 (Version 2)
Quarter: 2013Q4

REPORT INFORMATION
  Report Type: Spontaneous
  Country: DE (occurrence: DE)
  Receive Date: 20130926
  Receipt Date: 20131011
  Transmission Date: 20140711
  Serious: Yes (Other)
  Sender: FDA-Public Use
  Company Number: DE-MERCK-1309DEU010120

PATIENT
  Age: 52 Year
  Sex: Male
  Weight: 68 kg

DRUGS (4)
  1. REBETOL [Suspect]
     Indication: CHRONIC HEPATITIS C
     Dosage: TOTAL DAILY DOSE 1000, UNIT NOT PROVIDED
     Route: 048
     Dates: start: 20130614, end: 20130808
  2. REBETOL [Suspect]
     Dosage: UNK
     Route: 048
     Dates: start: 20130809, end: 20130909
  3. VICTRELIS [Suspect]
     Indication: CHRONIC HEPATITIS C
     Dosage: UNK
     Route: 048
     Dates: start: 20130712
  4. PEGINTRON [Suspect]
     Indication: CHRONIC HEPATITIS C
     Dosage: TOTAL DAILY DOSE 100, UNIT NOT PROVIDED
     Dates: start: 20130614

REACTIONS (2)
  - Anaemia [Recovering/Resolving]
  - Packed red blood cell transfusion [Unknown]
